FAERS Safety Report 9676041 (Version 2)
Quarter: 2013Q4

REPORT INFORMATION
  Report Type: Spontaneous
  Country: BR (occurrence: BR)
  Receive Date: 20131107
  Receipt Date: 20131205
  Transmission Date: 20140711
  Serious: Yes (Hospitalization)
  Sender: FDA-Public Use
  Company Number: PHHY2013BR126466

PATIENT
  Sex: Female

DRUGS (4)
  1. FORASEQ [Suspect]
     Dosage: UNK UKN, UNK
  2. FORADIL [Suspect]
     Indication: DYSPNOEA
     Dosage: 2 DF,  2 CAPSULES DAILY
     Dates: start: 2004
  3. MIFLASONA [Suspect]
     Indication: LUNG DISORDER
     Dosage: 2 DF, 2 CAPSULES DAILY
     Dates: start: 2004
  4. LOSARTAN [Concomitant]
     Indication: HYPERTENSION
     Dosage: 2 DF, 2 TABLETS
     Route: 048
     Dates: start: 2004

REACTIONS (3)
  - Feeling abnormal [Unknown]
  - Confusional state [Unknown]
  - Dyspnoea [Unknown]
